FAERS Safety Report 15834951 (Version 2)
Quarter: 2019Q1

REPORT INFORMATION
  Report Type: Spontaneous
  Country: US (occurrence: US)
  Receive Date: 20190116
  Receipt Date: 20190118
  Transmission Date: 20190417
  Serious: No
  Sender: FDA-Public Use
  Company Number: US-009507513-1812USA011966

PATIENT
  Sex: Female
  Weight: 45 kg

DRUGS (13)
  1. SINEMET [Suspect]
     Active Substance: CARBIDOPA\LEVODOPA
     Indication: PAIN
     Dosage: 25/100 MG 6 TABLETS DAILY
     Route: 048
  2. LORATADINE. [Concomitant]
     Active Substance: LORATADINE
  3. PRAVASTATIN. [Concomitant]
     Active Substance: PRAVASTATIN
  4. SINEMET [Suspect]
     Active Substance: CARBIDOPA\LEVODOPA
     Indication: PARKINSON^S DISEASE
  5. NUPLAZID [Suspect]
     Active Substance: PIMAVANSERIN TARTRATE
     Indication: PARKINSON^S DISEASE PSYCHOSIS
     Dosage: 34 MILLIGRAM, QD
     Route: 048
     Dates: start: 201811, end: 20181112
  6. VITAMINS (UNSPECIFIED) [Concomitant]
     Active Substance: VITAMINS
  7. GABAPENTIN. [Concomitant]
     Active Substance: GABAPENTIN
  8. IBUPROFEN. [Concomitant]
     Active Substance: IBUPROFEN
  9. NUPLAZID [Suspect]
     Active Substance: PIMAVANSERIN TARTRATE
     Dosage: 34 MILLIGRAM, QD
     Route: 048
     Dates: start: 2018
  10. PROBIOTICS (UNSPECIFIED) [Concomitant]
     Active Substance: PROBIOTICS NOS
  11. WELLBUTRIN [Suspect]
     Active Substance: BUPROPION HYDROCHLORIDE
     Dosage: 10 MILLIGRAM
     Dates: start: 2018
  12. ASPIRIN. [Concomitant]
     Active Substance: ASPIRIN
  13. MELATONIN [Concomitant]
     Active Substance: MELATONIN

REACTIONS (4)
  - Abnormal dreams [Not Recovered/Not Resolved]
  - Scratch [Not Recovered/Not Resolved]
  - Head injury [Not Recovered/Not Resolved]
  - Tachyphrenia [Not Recovered/Not Resolved]

NARRATIVE: CASE EVENT DATE: 2018
